FAERS Safety Report 9171700 (Version 2)
Quarter: 2013Q1

REPORT INFORMATION
  Report Type: Report from Study
  Country: RO (occurrence: RO)
  Receive Date: 20130319
  Receipt Date: 20130327
  Transmission Date: 20140127
  Serious: Yes (Other)
  Sender: FDA-Public Use
  Company Number: RO-ASTRAZENECA-2013SE17047

PATIENT
  Sex: 0

DRUGS (12)
  1. PROPOFOL [Suspect]
     Indication: GENERAL ANAESTHESIA
     Dosage: 6 MCG/ML
     Route: 042
  2. PROPOFOL [Suspect]
     Indication: INDUCTION OF ANAESTHESIA
     Dosage: 6 MCG/ML
     Route: 042
  3. PROPOFOL [Suspect]
     Indication: GENERAL ANAESTHESIA
     Dosage: 4 MCG/ML
     Route: 042
  4. PROPOFOL [Suspect]
     Indication: INDUCTION OF ANAESTHESIA
     Dosage: 4 MCG/ML
     Route: 042
  5. ROPIVACAINE [Suspect]
     Indication: LOCAL ANAESTHESIA
     Route: 008
  6. ROPIVACAINE [Suspect]
     Indication: LOCAL ANAESTHESIA
     Dosage: 15 ML/KG/H
     Route: 008
  7. REMIFENTANIL [Suspect]
     Dosage: 4 NG/ML
  8. REMIFENTANIL [Suspect]
     Dosage: 2-4 NG/ML
  9. ROCURONIUM [Suspect]
     Dosage: 0.6 MG/KG
  10. ROCURONIUM [Suspect]
     Dosage: 0.3 MG/KG
  11. ALPRAZOLAM [Concomitant]
     Dosage: 0.5 MG
     Route: 048
  12. MIDAZOLAM [Concomitant]
     Dosage: 0.02 MG/KG
     Route: 042

REACTIONS (2)
  - Cardiac failure [Unknown]
  - Haemodynamic instability [Unknown]
